FAERS Safety Report 5747374-7 (Version None)
Quarter: 2008Q2

REPORT INFORMATION
  Report Type: 
  Country: None (occurrence: None)
  Receive Date: 20080523
  Receipt Date: 20080514
  Transmission Date: 20081010
  Serious: Yes (Other)
  Sender: FDA-Public Use
  Company Number: US-JNJFOC-20061004860

PATIENT
  Sex: Male

DRUGS (1)
  1. RISPERDAL [Suspect]
     Indication: PSYCHOTIC DISORDER

REACTIONS (19)
  - ABDOMINAL PAIN [None]
  - BLOOD ALBUMIN DECREASED [None]
  - CHEST PAIN [None]
  - CRYING [None]
  - DEPRESSION [None]
  - DIABETES MELLITUS INADEQUATE CONTROL [None]
  - HALLUCINATIONS, MIXED [None]
  - HYPERSOMNIA [None]
  - IRRITABILITY [None]
  - LOW DENSITY LIPOPROTEIN INCREASED [None]
  - NAUSEA [None]
  - ORAL INTAKE REDUCED [None]
  - PRODUCTIVE COUGH [None]
  - PROTEIN TOTAL DECREASED [None]
  - PROTEIN URINE PRESENT [None]
  - TYPE 2 DIABETES MELLITUS [None]
  - URINARY INCONTINENCE [None]
  - VOMITING [None]
  - WHITE BLOOD CELL COUNT DECREASED [None]
